FAERS Safety Report 21682928 (Version 1)
Quarter: 2022Q4

REPORT INFORMATION
  Report Type: Report from Study
  Country: US (occurrence: US)
  Receive Date: 20221205
  Receipt Date: 20221205
  Transmission Date: 20230113
  Serious: Yes (Other)
  Sender: FDA-Public Use
  Company Number: US-BAYER-2022A165364

PATIENT
  Age: 49 Year
  Sex: Male

DRUGS (3)
  1. STIVARGA [Suspect]
     Active Substance: REGORAFENIB
     Indication: Colon cancer
     Dosage: UNK
     Dates: start: 20221010
  2. STIVARGA [Suspect]
     Active Substance: REGORAFENIB
     Indication: Colon cancer
     Dosage: 120 MG, QD, TAKE WITH A LOW FAT BREAKFAST ON DAYS 1 THROUGH 21 EVERY 28 DAYS
     Route: 048
     Dates: end: 20221118
  3. LONSURF [Concomitant]
     Active Substance: TIPIRACIL HYDROCHLORIDE\TRIFLURIDINE
     Indication: Illness
     Dosage: 20MG/8.19MG.TAKE 4 TABLETS TWICE A DAY,DAYS 1 -5 AND DAYS 8-12 EVERY 28 DAYS.SWALLOW TABLETS WHOLE

REACTIONS (2)
  - Colon cancer [Not Recovered/Not Resolved]
  - Cardiovascular disorder [Not Recovered/Not Resolved]

NARRATIVE: CASE EVENT DATE: 20221118
